FAERS Safety Report 18690678 (Version 3)
Quarter: 2021Q2

REPORT INFORMATION
  Report Type: Other
  Country: JP (occurrence: JP)
  Receive Date: 20210101
  Receipt Date: 20210413
  Transmission Date: 20210717
  Serious: Yes (Hospitalization)
  Sender: FDA-Public Use
  Company Number: JP-ROCHE-2741339

PATIENT
  Age: 59 Year
  Sex: Male
  Weight: 83 kg

DRUGS (27)
  1. RITUXIMAB. [Suspect]
     Active Substance: RITUXIMAB
     Indication: PROPHYLAXIS AGAINST TRANSPLANT REJECTION
     Dosage: MOST RECENT DOSE PRIOR TO AE  12/NOV/2018
     Route: 041
     Dates: start: 20181112
  2. FUNGUARD [Concomitant]
     Active Substance: MICAFUNGIN SODIUM
     Indication: INFECTION PROPHYLAXIS
     Route: 042
     Dates: start: 20181129, end: 20181212
  3. SOLU?MEDROL [Concomitant]
     Active Substance: METHYLPREDNISOLONE SODIUM SUCCINATE
     Route: 042
     Dates: start: 20181129, end: 20181129
  4. SOLU?MEDROL [Concomitant]
     Active Substance: METHYLPREDNISOLONE SODIUM SUCCINATE
     Route: 042
     Dates: start: 20181205, end: 20181205
  5. CLAFORAN [Concomitant]
     Active Substance: CEFOTAXIME SODIUM
     Indication: INFECTION PROPHYLAXIS
     Route: 042
     Dates: start: 20181128, end: 20181203
  6. SOLU?MEDROL [Concomitant]
     Active Substance: METHYLPREDNISOLONE SODIUM SUCCINATE
     Route: 042
     Dates: start: 20181130, end: 20181130
  7. SOLU?MEDROL [Concomitant]
     Active Substance: METHYLPREDNISOLONE SODIUM SUCCINATE
     Route: 042
     Dates: start: 20181202, end: 20181202
  8. VENOGLOBULIN [Concomitant]
     Active Substance: HUMAN IMMUNOGLOBULIN G
     Indication: INFECTION PROPHYLAXIS
     Route: 042
     Dates: start: 20181129, end: 20181219
  9. MYCOPHENOLATE MOFETIL. [Suspect]
     Active Substance: MYCOPHENOLATE MOFETIL
     Indication: PROPHYLAXIS AGAINST TRANSPLANT REJECTION
     Dosage: DOSE INTERVAL UNCERTAINTY
     Route: 048
     Dates: start: 20181121
  10. MEDROL [Suspect]
     Active Substance: METHYLPREDNISOLONE
     Route: 048
     Dates: start: 20190203
  11. SOLU?MEDROL [Concomitant]
     Active Substance: METHYLPREDNISOLONE SODIUM SUCCINATE
     Route: 042
     Dates: start: 20181128, end: 20181128
  12. SOLU?MEDROL [Concomitant]
     Active Substance: METHYLPREDNISOLONE SODIUM SUCCINATE
     Route: 042
     Dates: start: 20181203, end: 20181203
  13. MYCOPHENOLATE MOFETIL. [Suspect]
     Active Substance: MYCOPHENOLATE MOFETIL
     Dosage: DOSE INTERVAL UNCERTAINTY
     Route: 048
     Dates: start: 20181129
  14. MYCOPHENOLATE MOFETIL. [Suspect]
     Active Substance: MYCOPHENOLATE MOFETIL
     Dosage: DOSE INTERVAL UNCERTAINTY
     Route: 048
     Dates: start: 20190210
  15. MEDROL [Suspect]
     Active Substance: METHYLPREDNISOLONE
     Indication: PRODUCT USED FOR UNKNOWN INDICATION
     Route: 048
     Dates: start: 20181224
  16. MEDROL [Suspect]
     Active Substance: METHYLPREDNISOLONE
     Route: 048
     Dates: start: 20190109
  17. MEDROL [Suspect]
     Active Substance: METHYLPREDNISOLONE
     Route: 048
     Dates: start: 20190507
  18. SOLU?MEDROL [Concomitant]
     Active Substance: METHYLPREDNISOLONE SODIUM SUCCINATE
     Route: 042
     Dates: start: 20181204, end: 20181204
  19. SOLU?MEDROL [Concomitant]
     Active Substance: METHYLPREDNISOLONE SODIUM SUCCINATE
     Route: 042
     Dates: start: 20181206, end: 20181207
  20. SOLU?MEDROL [Concomitant]
     Active Substance: METHYLPREDNISOLONE SODIUM SUCCINATE
     Route: 042
     Dates: start: 20181208, end: 20181212
  21. UNASYN [Concomitant]
     Active Substance: AMPICILLIN SODIUM\SULBACTAM SODIUM
     Indication: INFECTION PROPHYLAXIS
     Route: 042
     Dates: start: 20181128, end: 20181203
  22. MYCOPHENOLATE MOFETIL. [Suspect]
     Active Substance: MYCOPHENOLATE MOFETIL
     Dosage: DOSE INTERVAL UNCERTAINTY
     Route: 048
     Dates: start: 20181204
  23. TACROLIMUS. [Suspect]
     Active Substance: TACROLIMUS
     Indication: PRODUCT USED FOR UNKNOWN INDICATION
     Dosage: MOST RECENT DOSE RECEIVED ON 27/MAY/2019
     Route: 048
     Dates: start: 20181121
  24. MEDROL [Suspect]
     Active Substance: METHYLPREDNISOLONE
     Route: 048
     Dates: start: 20190305
  25. SOLU?MEDROL [Concomitant]
     Active Substance: METHYLPREDNISOLONE SODIUM SUCCINATE
     Route: 042
     Dates: start: 20181201, end: 20181201
  26. MEDROL [Suspect]
     Active Substance: METHYLPREDNISOLONE
     Route: 048
     Dates: start: 20190210
  27. SOLU?MEDROL [Concomitant]
     Active Substance: METHYLPREDNISOLONE SODIUM SUCCINATE
     Route: 042
     Dates: start: 20181213, end: 20181223

REACTIONS (1)
  - Cholangitis [Recovering/Resolving]

NARRATIVE: CASE EVENT DATE: 20190128
